FAERS Safety Report 9727476 (Version 1)
Quarter: 2013Q4

REPORT INFORMATION
  Report Type: Spontaneous
  Country: TW (occurrence: TW)
  Receive Date: 20131203
  Receipt Date: 20131203
  Transmission Date: 20140711
  Serious: Yes (Other)
  Sender: FDA-Public Use
  Company Number: ALCN2013TW006028

PATIENT
  Sex: 0

DRUGS (1)
  1. CYCLOGYL [Suspect]
     Dosage: 1 DF, UNK
     Route: 047

REACTIONS (2)
  - Convulsion [Unknown]
  - Eye pain [Unknown]
